FAERS Safety Report 9209522 (Version 1)
Quarter: 2013Q1

REPORT INFORMATION
  Report Type: Spontaneous
  Country: US (occurrence: None)
  Receive Date: 20120820
  Receipt Date: 20120820
  Transmission Date: 20140127
  Serious: No
  Sender: FDA-Public Use
  Company Number: 1000031491

PATIENT
  Age: 57 Year
  Sex: Female

DRUGS (5)
  1. VIIBRYD [Suspect]
     Indication: DEPRESSION
     Dates: start: 20120614
  2. RITALIN [Concomitant]
  3. XANAX [Concomitant]
  4. RED YEAST RICE [Concomitant]
  5. VITAMINS NOS [Concomitant]

REACTIONS (1)
  - Insomnia [None]
